FAERS Safety Report 4959704-4 (Version None)
Quarter: 2006Q1

REPORT INFORMATION
  Report Type: 
  Country: None (occurrence: None)
  Receive Date: 20060331
  Receipt Date: 20060322
  Transmission Date: 20060701
  Serious: Yes (Other)
  Sender: FDA-Public Use
  Company Number: PHBS2006JP04503

PATIENT
  Age: 65 Year

DRUGS (17)
  1. SLOW-K [Suspect]
  2. MYSLEE [Concomitant]
  3. ISOSORBIDE MONONITRATE [Concomitant]
  4. NAUZELIN [Concomitant]
  5. AMLODIN [Concomitant]
  6. PAXIL [Concomitant]
  7. TAKEPRON [Concomitant]
  8. LASIX [Concomitant]
  9. BISOLVON [Concomitant]
  10. CRAVIT [Concomitant]
  11. HERBESSOR R [Concomitant]
  12. SIGMART [Concomitant]
  13. ROHYPNOL [Concomitant]
  14. ROCORNAL [Concomitant]
  15. EPADEL [Concomitant]
  16. DEPAS [Concomitant]
  17. HALCION [Concomitant]

REACTIONS (2)
  - BLOOD CREATINE PHOSPHOKINASE INCREASED [None]
  - RHABDOMYOLYSIS [None]
